FAERS Safety Report 6740363-5 (Version None)
Quarter: 2010Q2

REPORT INFORMATION
  Report Type: 
  Country: None (occurrence: None)
  Receive Date: 20100521
  Receipt Date: 20100315
  Transmission Date: 20101027
  Serious: Yes (Death, Hospitalization)
  Sender: FDA-Public Use
  Company Number: 536928

PATIENT
  Age: 60 Year
  Sex: Female

DRUGS (6)
  1. OXALIPLATIN [Suspect]
     Indication: COLORECTAL CANCER
     Dosage: INTRAVENOUS DRIP
     Route: 041
     Dates: start: 20090821, end: 20090821
  2. (CAPECITABTNE) [Concomitant]
     Indication: COLORECTAL CANCER
     Dosage: ORAL
     Route: 048
     Dates: start: 20090521
  3. (ADCAL-D3) [Concomitant]
  4. (ASPIRIN /0002701/) [Concomitant]
  5. SIMVASTATIN [Concomitant]
  6. (AMOXICILLIN) [Concomitant]

REACTIONS (10)
  - COLORECTAL CANCER [None]
  - ELECTROCARDIOGRAM T WAVE ABNORMAL [None]
  - FEMORAL ARTERY EMBOLISM [None]
  - GENERAL PHYSICAL HEALTH DETERIORATION [None]
  - LYMPHADENOPATHY [None]
  - MYOCARDIAL ISCHAEMIA [None]
  - PERIPHERAL ISCHAEMIA [None]
  - PULMONARY EMBOLISM [None]
  - SINUS TACHYCARDIA [None]
  - UROSEPSIS [None]
